FAERS Safety Report 8596151 (Version 2)
Quarter: 2013Q3

REPORT INFORMATION
  Report Type: Spontaneous
  Country: US (occurrence: US)
  Receive Date: 20120605
  Receipt Date: 20130723
  Transmission Date: 20140515
  Serious: Yes (Disabling, Other)
  Sender: FDA-Public Use
  Company Number: US-ASTRAZENECA-2012SE34830

PATIENT
  Age: 799 Month
  Sex: Female

DRUGS (19)
  1. NEXIUM [Suspect]
     Indication: GASTROOESOPHAGEAL REFLUX DISEASE
     Dosage: ONE OR TWICE A DAY
     Route: 048
  2. NEXIUM [Suspect]
     Indication: GASTROOESOPHAGEAL REFLUX DISEASE
     Route: 048
     Dates: start: 20060227
  3. PRILOSEC [Suspect]
     Route: 048
  4. TUMS [Concomitant]
  5. ALKA SELTZER [Concomitant]
  6. PEPTO BISMOL [Concomitant]
  7. ROLAIDS [Concomitant]
  8. MYLANTA [Concomitant]
  9. LISINOPRIL [Concomitant]
     Indication: HYPERTENSION
  10. HCTZ [Concomitant]
     Indication: HYPERTENSION
     Dates: start: 20070208
  11. PRAVASTATIN [Concomitant]
     Indication: BLOOD CHOLESTEROL ABNORMAL
  12. PANTOPRAZOLE [Concomitant]
  13. ALTACE [Concomitant]
     Dates: start: 20070208
  14. AMITRIPTYLINE [Concomitant]
     Dates: start: 20060125
  15. ENALAPRIL/HCTZ [Concomitant]
     Dosage: 10/25
     Dates: start: 20060227
  16. NORVASC [Concomitant]
     Dates: start: 20060227
  17. DIOVAN [Concomitant]
     Dates: start: 20060822
  18. VERAPAMIL [Concomitant]
     Dates: start: 20060822
  19. SIMVASTATIN [Concomitant]
     Dates: start: 20070122

REACTIONS (10)
  - Bone cancer [Unknown]
  - Back injury [Unknown]
  - Osteoporosis [Unknown]
  - Ankle fracture [Unknown]
  - Bone disorder [Unknown]
  - Gastric disorder [Unknown]
  - Ligament sprain [Unknown]
  - Atrophy [Unknown]
  - Arthritis [Unknown]
  - Dyspepsia [Unknown]
